FAERS Safety Report 9190230 (Version 1)
Quarter: 2013Q1

REPORT INFORMATION
  Report Type: Spontaneous
  Country: US (occurrence: None)
  Receive Date: 20130322
  Receipt Date: 20130322
  Transmission Date: 20140127
  Serious: Yes (Other)
  Sender: FDA-Public Use
  Company Number: 2013HINLIT0055

PATIENT
  Age: 67 Year
  Sex: Female

DRUGS (3)
  1. LITHIUM (LITHIUM) UNKNOWN [Suspect]
     Indication: BIPOLAR DISORDER
  2. ARIPIPRAZOLE (ARIPIPRAZOLE) [Concomitant]
  3. LAMOTRIGINE (LAMOTRIGINE) [Concomitant]

REACTIONS (11)
  - Renal failure chronic [None]
  - Toxicity to various agents [None]
  - Tremor [None]
  - Confusional state [None]
  - Influenza [None]
  - Diarrhoea [None]
  - Fluid intake reduced [None]
  - Mental status changes [None]
  - Delirium [None]
  - Infection [None]
  - Renal transplant [None]
